FAERS Safety Report 9308219 (Version 1)
Quarter: 2013Q2

REPORT INFORMATION
  Report Type: Report from Study
  Country: CA (occurrence: CA)
  Receive Date: 20130524
  Receipt Date: 20130524
  Transmission Date: 20140414
  Serious: Yes (Other)
  Sender: FDA-Public Use
  Company Number: CA-ABBOTT-13P-028-1051253-00

PATIENT
  Age: 73 Year
  Sex: Male
  Weight: 81.72 kg

DRUGS (10)
  1. HUMIRA [Suspect]
     Indication: RHEUMATOID ARTHRITIS
     Route: 058
     Dates: start: 20121013, end: 20130119
  2. PREDNISONE [Suspect]
     Indication: RHEUMATOID ARTHRITIS
     Route: 048
  3. PREDNISONE [Suspect]
     Dates: end: 20130213
  4. PREDNISONE [Suspect]
     Dosage: STRESS DOSE
     Dates: start: 20130214, end: 20130220
  5. PREDNISONE [Suspect]
     Dates: start: 20130221
  6. RAMIPRIL [Concomitant]
     Indication: HYPERTENSION
     Route: 048
  7. NORVASC [Concomitant]
     Indication: HYPERTENSION
     Route: 048
  8. VITAMIN C [Concomitant]
     Indication: VITAMIN SUPPLEMENTATION
     Route: 048
     Dates: start: 2012
  9. VITAMIN D [Concomitant]
     Indication: VITAMIN SUPPLEMENTATION
     Route: 048
     Dates: start: 2012
  10. VITAMINS [Concomitant]
     Indication: PRODUCT USED FOR UNKNOWN INDICATION

REACTIONS (11)
  - Lymphadenopathy [Unknown]
  - Rectal adenocarcinoma [Unknown]
  - Hiatus hernia [Unknown]
  - Hepatic lesion [Unknown]
  - Impaired healing [Unknown]
  - Peroneal nerve palsy [Not Recovered/Not Resolved]
  - Sciatica [Not Recovered/Not Resolved]
  - Sensory loss [Unknown]
  - Dysplasia [Unknown]
  - Wound secretion [Unknown]
  - Wound infection [Unknown]
